FAERS Safety Report 16575752 (Version 1)
Quarter: 2019Q3

REPORT INFORMATION
  Report Type: Spontaneous
  Country: US (occurrence: US)
  Receive Date: 20190716
  Receipt Date: 20190716
  Transmission Date: 20191004
  Serious: Yes (Hospitalization)
  Sender: FDA-Public Use
  Company Number: US-HETERO-HET2019US00947

PATIENT
  Age: 25 Year
  Sex: Female

DRUGS (1)
  1. CITALOPRAM [Suspect]
     Active Substance: CITALOPRAM HYDROBROMIDE
     Indication: PRODUCT USED FOR UNKNOWN INDICATION
     Dosage: 760 MG
     Route: 065

REACTIONS (4)
  - Serotonin syndrome [Unknown]
  - Hyperthermia [Unknown]
  - Generalised tonic-clonic seizure [Unknown]
  - Intentional overdose [Unknown]
